FAERS Safety Report 7793576-8 (Version None)
Quarter: 2011Q4

REPORT INFORMATION
  Report Type: 
  Country: None (occurrence: None)
  Receive Date: 20111003
  Receipt Date: 20110822
  Transmission Date: 20120403
  Serious: Yes (Death)
  Sender: FDA-Public Use
  Company Number: PHEH2011US05581

PATIENT
  Sex: Female

DRUGS (3)
  1. ARALAST [Concomitant]
  2. TOBI [Suspect]
     Dosage: 300 MG, BID
     Dates: start: 20110629
  3. IMMUNOGLOBULINS [Concomitant]

REACTIONS (1)
  - DEATH [None]
